FAERS Safety Report 19372938 (Version 1)
Quarter: 2021Q2

REPORT INFORMATION
  Report Type: Spontaneous
  Country: CN (occurrence: CN)
  Receive Date: 20210603
  Receipt Date: 20210603
  Transmission Date: 20210717
  Serious: Yes (Other)
  Sender: FDA-Public Use
  Company Number: CN-009507513-2105CHN007471

PATIENT
  Age: 26 Year
  Sex: Male
  Weight: 50 kg

DRUGS (2)
  1. KEYTRUDA [Suspect]
     Active Substance: PEMBROLIZUMAB
     Indication: MALIGNANT MELANOMA
     Dosage: 200 MG, ONCE EVERY 21 DAYS
     Route: 041
     Dates: start: 20190914, end: 20191125
  2. NORMAL SALINE [Concomitant]
     Active Substance: SODIUM CHLORIDE
     Dosage: 100 ML, ONCE EVERY 21 DAYS
     Dates: start: 20190914, end: 20191125

REACTIONS (5)
  - Syncope [Recovering/Resolving]
  - Pain [Recovering/Resolving]
  - Immune-mediated encephalitis [Recovering/Resolving]
  - Dizziness [Recovering/Resolving]
  - Back pain [Recovering/Resolving]

NARRATIVE: CASE EVENT DATE: 20191017
